FAERS Safety Report 6099361-X (Version None)
Quarter: 2009Q1

REPORT INFORMATION
  Report Type: 
  Country: None (occurrence: None)
  Receive Date: 20090226
  Receipt Date: 20090226
  Transmission Date: 20090719
  Serious: Yes (Hospitalization)
  Sender: FDA-Public Use
  Company Number: None

PATIENT
  Age: 18 Year
  Sex: Male
  Weight: 68 kg

DRUGS (1)
  1. DEXTROMETHORPHAN [Suspect]
     Dates: start: 20090221, end: 20090221

REACTIONS (5)
  - AGITATION [None]
  - DIZZINESS [None]
  - INCORRECT DOSE ADMINISTERED [None]
  - TACHYCARDIA [None]
  - TACHYPNOEA [None]
